FAERS Safety Report 5565885-4 (Version None)
Quarter: 2007Q4

REPORT INFORMATION
  Report Type: 
  Country: None (occurrence: None)
  Receive Date: 20071213
  Receipt Date: 20071129
  Transmission Date: 20080405
  Serious: Yes (Life-Threatening, Hospitalization, Disabling)
  Sender: FDA-Public Use
  Company Number: 2007BI012986

PATIENT
  Age: 62 Year
  Sex: Male
  Weight: 73 kg

DRUGS (3)
  1. NATALIZUMAB (NATALIZUMAB) [Suspect]
     Indication: RELAPSING-REMITTING MULTIPLE SCLEROSIS
     Dosage: 300 MG; QM; IV
     Route: 042
     Dates: start: 20070122, end: 20070415
  2. EFEROX 25 [Concomitant]
  3. LIORESAL [Concomitant]

REACTIONS (4)
  - ARTERIOSCLEROSIS [None]
  - BASILAR ARTERY THROMBOSIS [None]
  - BRAIN STEM INFARCTION [None]
  - CEREBELLAR INFARCTION [None]
